FAERS Safety Report 8758333 (Version 5)
Quarter: 2013Q3

REPORT INFORMATION
  Report Type: Spontaneous
  Country: BR (occurrence: BR)
  Receive Date: 20120829
  Receipt Date: 20130816
  Transmission Date: 20140515
  Serious: Yes (Other)
  Sender: FDA-Public Use
  Company Number: BR-AMGEN-BRASP2012052090

PATIENT
  Age: 57 Year
  Sex: Male
  Weight: 108 kg

DRUGS (7)
  1. ENBREL [Suspect]
     Indication: PSORIATIC ARTHROPATHY
     Dosage: 25 MG, 2X/WEEK
     Route: 058
     Dates: start: 200810
  2. ENBREL [Suspect]
     Dosage: 50 MG, ONCE WEEKLY
     Route: 065
  3. ENBREL [Suspect]
     Dosage: 25 MG, 2X/WEEK
     Route: 065
     Dates: start: 200810
  4. CAPTOPRIL [Concomitant]
     Dosage: 25 MG, 3X/DAY
     Dates: start: 2003
  5. CARVEDILOL [Concomitant]
     Dosage: 6.25 MG, 2X/DAY
  6. DILTIAZEM [Concomitant]
     Indication: HYPERTENSION
     Dosage: 3 TABLETS DAILY
     Dates: start: 2005
  7. MAREVAN [Concomitant]
     Dosage: UNK

REACTIONS (8)
  - Vomiting [Not Recovered/Not Resolved]
  - Aphagia [Not Recovered/Not Resolved]
  - Diarrhoea [Not Recovered/Not Resolved]
  - Asthenia [Not Recovered/Not Resolved]
  - Haemoptysis [Not Recovered/Not Resolved]
  - Pain in extremity [Unknown]
  - Nasopharyngitis [Recovered/Resolved]
  - Influenza [Not Recovered/Not Resolved]
